FAERS Safety Report 15899292 (Version 1)
Quarter: 2019Q1

REPORT INFORMATION
  Report Type: Report from Study
  Country: JP (occurrence: JP)
  Receive Date: 20190201
  Receipt Date: 20190201
  Transmission Date: 20190417
  Serious: Yes (Hospitalization)
  Sender: FDA-Public Use
  Company Number: PHHY2013JP175313

PATIENT
  Age: 39 Year
  Sex: Female
  Weight: 49 kg

DRUGS (16)
  1. NASEA [Concomitant]
     Active Substance: RAMOSETRON HYDROCHLORIDE
     Indication: NAUSEA
     Dosage: 0.1 MG, QD
     Route: 048
     Dates: start: 20130315, end: 20130329
  2. DUROTEP [Concomitant]
     Active Substance: FENTANYL
     Indication: CANCER PAIN
     Dosage: 4.2 MG, Q72H
     Route: 048
     Dates: start: 20130223
  3. DECADRON [Suspect]
     Active Substance: DEXAMETHASONE
     Indication: NAUSEA
     Dosage: 1 MG, BID
     Route: 048
     Dates: start: 20130308, end: 20130329
  4. PREDONINE [Suspect]
     Active Substance: PREDNISOLONE
     Indication: INFLAMMATION
     Dosage: 5 MG, QD
     Route: 048
     Dates: start: 20121113, end: 20130329
  5. ROCALTROL [Concomitant]
     Active Substance: CALCITRIOL
     Indication: HYPOCALCAEMIA
     Dosage: 0.25 UG, QD
     Route: 048
     Dates: start: 20130115, end: 20130329
  6. LUNESTA [Concomitant]
     Active Substance: ESZOPICLONE
     Indication: INSOMNIA
     Dosage: 1 MG, QD
     Route: 048
     Dates: start: 20130319, end: 20130329
  7. NOVAMIN [Concomitant]
     Indication: NAUSEA
     Dosage: 5 MG, BID
     Route: 048
     Dates: start: 20130314, end: 20130329
  8. AMLODIPINE [Concomitant]
     Active Substance: AMLODIPINE BESYLATE
     Indication: HYPERTENSION
     Dosage: 5 MG, QD
     Route: 048
     Dates: start: 20130226, end: 20130329
  9. U PAN [Concomitant]
     Active Substance: LORAZEPAM
     Indication: INSOMNIA
     Dosage: 0.5 MG, BID
     Route: 048
     Dates: start: 20130319, end: 20130329
  10. LOXOPROFEN [Suspect]
     Active Substance: LOXOPROFEN
     Indication: CANCER PAIN
     Dosage: 60 MG, TID
     Route: 048
     Dates: start: 20121113, end: 20130329
  11. VOTRIENT [Suspect]
     Active Substance: PAZOPANIB HYDROCHLORIDE
     Indication: HEPATIC ANGIOSARCOMA
     Dosage: 800 MG, QD
     Route: 048
     Dates: start: 20130226, end: 20130329
  12. GASTER [Concomitant]
     Active Substance: FAMOTIDINE
     Indication: PROPHYLAXIS AGAINST GASTROINTESTINAL ULCER
     Dosage: 20 MG, BID
     Route: 048
     Dates: start: 20130227, end: 20130329
  13. LAC-B [Concomitant]
     Active Substance: BIFIDOBACTERIUM SPP.
     Indication: PRODUCT USED FOR UNKNOWN INDICATION
     Dosage: 10 MG, TID
     Route: 048
     Dates: start: 20130304, end: 20130329
  14. PIARLE [Concomitant]
     Indication: CONSTIPATION
     Dosage: 10 ML, TID
     Route: 048
     Dates: start: 20130322, end: 20130329
  15. CALCIUM LACTATE [Concomitant]
     Active Substance: CALCIUM LACTATE
     Indication: HYPOCALCAEMIA
     Dosage: 1 G, QD
     Route: 048
     Dates: start: 20130108, end: 20130329
  16. DIOVAN [Concomitant]
     Active Substance: VALSARTAN
     Indication: HYPERTENSION
     Dosage: 40 MG, QD
     Route: 048
     Dates: start: 20130222, end: 20130329

REACTIONS (6)
  - Shock haemorrhagic [Recovered/Resolved]
  - Blood pressure increased [Recovering/Resolving]
  - Nausea [Recovering/Resolving]
  - Gastric ulcer haemorrhage [Not Recovered/Not Resolved]
  - Disseminated intravascular coagulation [Recovering/Resolving]
  - Acute kidney injury [Recovered/Resolved]

NARRATIVE: CASE EVENT DATE: 20130226
